FAERS Safety Report 7382852-9 (Version None)
Quarter: 2011Q1

REPORT INFORMATION
  Report Type: 
  Country: None (occurrence: None)
  Receive Date: 20110325
  Receipt Date: 20110325
  Transmission Date: 20110831
  Serious: Yes (Disabling, Other)
  Sender: FDA-Public Use
  Company Number: None

PATIENT
  Age: 1 Year
  Sex: Female
  Weight: 11.3399 kg

DRUGS (1)
  1. ALCOHOL PREPS 70% V/V ALCOOL ISOPROPYLIQUE TRIAD [Suspect]
     Dates: start: 20100930, end: 20101115

REACTIONS (2)
  - APPLICATION SITE INFECTION [None]
  - PRODUCT QUALITY ISSUE [None]
